FAERS Safety Report 19499824 (Version 1)
Quarter: 2021Q3

REPORT INFORMATION
  Report Type: Spontaneous
  Country: FR (occurrence: FR)
  Receive Date: 20210707
  Receipt Date: 20210707
  Transmission Date: 20211014
  Serious: Yes (Hospitalization)
  Sender: FDA-Public Use
  Company Number: FR-TEVA-2021-FR-1929721

PATIENT
  Age: 14 Year
  Sex: Female
  Weight: 61.3 kg

DRUGS (2)
  1. VENLAFAXINE [Suspect]
     Active Substance: VENLAFAXINE HYDROCHLORIDE
     Dosage: 30 DF
     Route: 048
     Dates: start: 20210430, end: 20210430
  2. DICODIN L.P. 60 MG, COMPRIME A LIBERATION PROLONGEE [Suspect]
     Active Substance: DIHYDROCODEINE BITARTRATE
     Dosage: 20 DF
     Route: 048
     Dates: start: 20210430, end: 20210430

REACTIONS (3)
  - Somnolence [Recovered/Resolved]
  - Palpitations [Recovered/Resolved]
  - Poisoning deliberate [Recovered/Resolved]

NARRATIVE: CASE EVENT DATE: 20210430
